FAERS Safety Report 6143196-6 (Version None)
Quarter: 2009Q2

REPORT INFORMATION
  Report Type: 
  Country: None (occurrence: None)
  Receive Date: 20090403
  Receipt Date: 20040918
  Transmission Date: 20091009
  Serious: Yes (Hospitalization)
  Sender: FDA-Public Use
  Company Number: BR-ROCHE-363632

PATIENT
  Sex: Female
  Weight: 57.3 kg

DRUGS (34)
  1. MYCOPHENOLATE MOFETIL [Suspect]
     Route: 048
     Dates: start: 20031212
  2. DACLIZUMAB [Suspect]
     Route: 042
     Dates: start: 20031212, end: 20031212
  3. DACLIZUMAB [Suspect]
     Dosage: 60MG ON 26 DEC 2003, 10 JAN 2004, 19 JAN 2004 AND 06 FEB 2004.
     Route: 042
     Dates: start: 20031226, end: 20040206
  4. TACROLIMUS [Suspect]
     Route: 048
     Dates: start: 20031212
  5. TACROLIMUS [Suspect]
     Route: 048
     Dates: start: 20040108
  6. TACROLIMUS [Suspect]
     Route: 048
     Dates: start: 20040112
  7. TACROLIMUS [Suspect]
     Route: 048
     Dates: start: 20040707
  8. PREDNISONE [Suspect]
     Route: 048
     Dates: start: 20030108
  9. PREDNISONE [Suspect]
     Route: 048
     Dates: start: 20031212
  10. PREDNISONE [Suspect]
     Route: 048
     Dates: start: 20031220
  11. PREDNISONE [Suspect]
     Route: 048
     Dates: start: 20031226
  12. PREDNISONE [Suspect]
     Route: 048
     Dates: start: 20040105
  13. PREDNISONE [Suspect]
     Route: 048
     Dates: start: 20040114
  14. PREDNISONE [Suspect]
     Route: 048
     Dates: start: 20040122
  15. PREDNISONE [Suspect]
     Route: 048
     Dates: start: 20040304
  16. PREDNISONE [Suspect]
     Route: 048
     Dates: start: 20040310
  17. CLONIDINE [Concomitant]
     Route: 048
     Dates: start: 20031219
  18. OMEPRAZOLE [Concomitant]
     Route: 048
     Dates: start: 20031228
  19. FUROSEMIDE [Concomitant]
     Route: 048
     Dates: start: 20030329
  20. FOLIC ACID [Concomitant]
     Route: 048
     Dates: start: 20031223
  21. VITAMIN B COMPLEX CAP [Concomitant]
     Route: 048
     Dates: start: 20031223
  22. AMLODIPINE BESYLATE [Concomitant]
     Route: 048
     Dates: start: 20041013, end: 20041222
  23. ATENOLOL [Concomitant]
     Route: 048
     Dates: start: 20040127
  24. ATENOLOL [Concomitant]
     Route: 048
     Dates: start: 20040310
  25. ATENOLOL [Concomitant]
     Route: 048
     Dates: start: 20040311
  26. NIFEDIPINE [Concomitant]
     Dates: start: 20031216
  27. OXACILLIN [Concomitant]
     Route: 042
     Dates: start: 20031221
  28. ATORVASTATIN CALCIUM [Concomitant]
     Dates: start: 20040616
  29. CEPHALEXIN [Concomitant]
     Dates: start: 20031216
  30. CEPHALOTHIN [Concomitant]
     Dates: start: 20031212
  31. GANCICLOVIR [Concomitant]
     Route: 042
     Dates: start: 20031212
  32. GANCICLOVIR [Concomitant]
     Route: 042
     Dates: start: 20031214
  33. METHYLPREDNISOLONE 4MG TAB [Concomitant]
     Dates: start: 20031212
  34. OXACILLIN [Concomitant]
     Dates: start: 20031222

REACTIONS (2)
  - GLAUCOMA [None]
  - VOMITING [None]
